FAERS Safety Report 6196058-2 (Version None)
Quarter: 2009Q2

REPORT INFORMATION
  Report Type: 
  Country: None (occurrence: None)
  Receive Date: 20090520
  Receipt Date: 20090508
  Transmission Date: 20091009
  Serious: Yes (Hospitalization)
  Sender: FDA-Public Use
  Company Number: DE-PFIZER INC-2009150758

PATIENT

DRUGS (3)
  1. LYRICA [Suspect]
     Indication: ANXIETY DISORDER
     Dosage: UNK
     Route: 048
     Dates: start: 20081201
  2. LYRICA [Suspect]
     Indication: DEPRESSION
  3. VENLAFAXINE [Suspect]
     Dosage: UNK

REACTIONS (1)
  - RHABDOMYOLYSIS [None]
